FAERS Safety Report 7179469-8 (Version None)
Quarter: 2010Q4

REPORT INFORMATION
  Report Type: 
  Country: None (occurrence: None)
  Receive Date: 20101208
  Receipt Date: 20101125
  Transmission Date: 20110411
  Serious: Yes (Hospitalization, Other)
  Sender: FDA-Public Use
  Company Number: 2010-3585

PATIENT
  Age: 70 Year
  Sex: Male

DRUGS (2)
  1. APO-GO PFS (APO-GO) (APOMORPHINE HYDROCHLORIDE) (APOMORPHINE HYDROCHLO [Suspect]
     Indication: ON AND OFF PHENOMENON
     Dosage: (16 HOURS/DAY), SUBCUTANEOUS
     Route: 058
     Dates: start: 20100825, end: 20101002
  2. APO-GO PFS (APO-GO) (APOMORPHINE HYDROCHLORIDE) (APOMORPHINE HYDROCHLO [Suspect]
     Indication: PARKINSON'S DISEASE
     Dosage: (16 HOURS/DAY), SUBCUTANEOUS
     Route: 058
     Dates: start: 20100825, end: 20101002

REACTIONS (2)
  - HYPERTENSION [None]
  - SYNCOPE [None]
